FAERS Safety Report 15404430 (Version 1)
Quarter: 2018Q3

REPORT INFORMATION
  Report Type: Report from Study
  Country: ES (occurrence: ES)
  Receive Date: 20180919
  Receipt Date: 20180919
  Transmission Date: 20181010
  Serious: Yes (Hospitalization)
  Sender: FDA-Public Use
  Company Number: ES-SHIRE-ES201835271

PATIENT

DRUGS (2)
  1. HYQVIA [Suspect]
     Active Substance: HUMAN IMMUNOGLOBULIN G\HYALURONIDASE RECOMBINANT HUMAN
     Dosage: 3 VIALS OF 100 ML
  2. HYQVIA [Suspect]
     Active Substance: HUMAN IMMUNOGLOBULIN G\HYALURONIDASE RECOMBINANT HUMAN
     Indication: PRODUCT USED FOR UNKNOWN INDICATION
     Dosage: 45 G, 1X/2WKS
     Route: 058

REACTIONS (9)
  - Injury [Unknown]
  - Accidental exposure to product [Unknown]
  - Infusion site discomfort [Unknown]
  - General physical health deterioration [Unknown]
  - Infusion site pruritus [Unknown]
  - Infusion site inflammation [Unknown]
  - Blood immunoglobulin G decreased [Unknown]
  - Diarrhoea [Unknown]
  - Anaemia [Unknown]
